FAERS Safety Report 25234192 (Version 3)
Quarter: 2025Q2

REPORT INFORMATION
  Report Type: Spontaneous
  Country: CN (occurrence: CN)
  Receive Date: 20250424
  Receipt Date: 20250604
  Transmission Date: 20250717
  Serious: Yes (Hospitalization, Other)
  Sender: RANBAXY
  Company Number: CN-SUN PHARMACEUTICAL INDUSTRIES LTD-2025R1-504759

PATIENT
  Age: 87 Year
  Sex: Male

DRUGS (1)
  1. ODOMZO [Suspect]
     Active Substance: SONIDEGIB
     Indication: Basal cell carcinoma
     Dosage: 200 MILLIGRAM, QD
     Route: 048
     Dates: start: 20250212

REACTIONS (11)
  - Asthenia [Recovering/Resolving]
  - Electrolyte imbalance [Recovered/Resolved]
  - Language disorder [Recovering/Resolving]
  - Pain in extremity [Unknown]
  - Vomiting [Recovering/Resolving]
  - Blood potassium decreased [Recovering/Resolving]
  - Blood chloride decreased [Recovering/Resolving]
  - Blood creatine phosphokinase increased [Unknown]
  - Oedema peripheral [Recovered/Resolved]
  - Localised oedema [Recovered/Resolved]
  - Hypogeusia [Unknown]

NARRATIVE: CASE EVENT DATE: 20250407
